FAERS Safety Report 14183297 (Version 4)
Quarter: 2018Q2

REPORT INFORMATION
  Report Type: Spontaneous
  Country: JP (occurrence: JP)
  Receive Date: 20171113
  Receipt Date: 20180626
  Transmission Date: 20180711
  Serious: Yes (Death, Hospitalization, Other)
  Sender: FDA-Public Use
  Company Number: JP-009507513-1710JPN000391J

PATIENT
  Age: 85 Year
  Sex: Male
  Weight: 68 kg

DRUGS (8)
  1. CALONAL [Concomitant]
     Active Substance: ACETAMINOPHEN
     Dosage: 400 MG, QID
     Route: 065
     Dates: start: 20170828, end: 20171008
  2. BUP-4 [Concomitant]
     Active Substance: PROPIVERINE
     Dosage: 20 MG, QD
     Route: 048
     Dates: start: 20170828, end: 20171008
  3. NEXIUM [Concomitant]
     Active Substance: ESOMEPRAZOLE MAGNESIUM
     Dosage: 20 MG, QD
     Route: 048
     Dates: start: 20170908, end: 20171008
  4. CELECOX [Concomitant]
     Active Substance: CELECOXIB
     Dosage: 100 MG, BID
     Route: 048
     Dates: start: 20170828, end: 20171008
  5. FEBURIC [Concomitant]
     Active Substance: FEBUXOSTAT
     Dosage: 10 MG, QD
     Route: 048
     Dates: start: 20170828, end: 20171008
  6. KEYTRUDA [Suspect]
     Active Substance: PEMBROLIZUMAB
     Indication: LUNG ADENOCARCINOMA
     Dosage: 200 MG, Q3W
     Route: 041
     Dates: start: 20170920, end: 20170920
  7. AZILVA [Concomitant]
     Active Substance: AZILSARTAN KAMEDOXOMIL
     Dosage: 20 MG, QD
     Route: 048
     Dates: start: 20170828, end: 20171008
  8. PANVITAN [Concomitant]
     Dosage: 1 G, QD
     Route: 048
     Dates: start: 20170906, end: 20171008

REACTIONS (2)
  - Malignant neoplasm progression [Fatal]
  - Interstitial lung disease [Not Recovered/Not Resolved]

NARRATIVE: CASE EVENT DATE: 20170923
